FAERS Safety Report 18846875 (Version 2)
Quarter: 2022Q1

REPORT INFORMATION
  Report Type: Report from Study
  Country: DE (occurrence: DE)
  Receive Date: 20210204
  Receipt Date: 20220212
  Transmission Date: 20220424
  Serious: Yes (Hospitalization, Other)
  Sender: FDA-Public Use
  Company Number: DE-SHIRE-DE202010563

PATIENT
  Age: 54 Year
  Sex: Male
  Weight: 76 kg

DRUGS (16)
  1. TEDUGLUTIDE [Suspect]
     Active Substance: TEDUGLUTIDE
     Indication: Short-bowel syndrome
     Dosage: 0.38 MILLILITER, 1X/DAY:QD
     Route: 058
     Dates: start: 20190627
  2. TEDUGLUTIDE [Suspect]
     Active Substance: TEDUGLUTIDE
     Indication: Short-bowel syndrome
     Dosage: 0.38 MILLILITER, 1X/DAY:QD
     Route: 058
     Dates: start: 20190627
  3. TEDUGLUTIDE [Suspect]
     Active Substance: TEDUGLUTIDE
     Indication: Short-bowel syndrome
     Dosage: 0.38 MILLILITER, 1X/DAY:QD
     Route: 058
     Dates: start: 20190627
  4. TEDUGLUTIDE [Suspect]
     Active Substance: TEDUGLUTIDE
     Indication: Short-bowel syndrome
     Dosage: 0.38 MILLILITER, 1X/DAY:QD
     Route: 058
     Dates: start: 20190627
  5. TEDUGLUTIDE [Suspect]
     Active Substance: TEDUGLUTIDE
     Dosage: 0.38 MILLILITER, 1X/DAY:QD
     Route: 058
     Dates: start: 20190627
  6. TEDUGLUTIDE [Suspect]
     Active Substance: TEDUGLUTIDE
     Dosage: 0.38 MILLILITER, 1X/DAY:QD
     Route: 058
     Dates: start: 20190627
  7. TEDUGLUTIDE [Suspect]
     Active Substance: TEDUGLUTIDE
     Dosage: 0.38 MILLILITER, 1X/DAY:QD
     Route: 058
     Dates: start: 20190627
  8. TEDUGLUTIDE [Suspect]
     Active Substance: TEDUGLUTIDE
     Dosage: 0.38 MILLILITER, 1X/DAY:QD
     Route: 058
     Dates: start: 20190627
  9. TEDUGLUTIDE [Suspect]
     Active Substance: TEDUGLUTIDE
     Dosage: 0.38 MILLILITER, QD
     Route: 058
     Dates: start: 20190627
  10. TEDUGLUTIDE [Suspect]
     Active Substance: TEDUGLUTIDE
     Dosage: 0.38 MILLILITER, QD
     Route: 058
     Dates: start: 20190627
  11. TEDUGLUTIDE [Suspect]
     Active Substance: TEDUGLUTIDE
     Dosage: 0.38 MILLILITER, QD
     Route: 058
     Dates: start: 20190627
  12. TEDUGLUTIDE [Suspect]
     Active Substance: TEDUGLUTIDE
     Dosage: 0.38 MILLILITER, QD
     Route: 058
     Dates: start: 20190627
  13. TEDUGLUTIDE [Suspect]
     Active Substance: TEDUGLUTIDE
     Dosage: 0.36 MILLILITER, QD
     Route: 058
  14. TEDUGLUTIDE [Suspect]
     Active Substance: TEDUGLUTIDE
     Dosage: 0.36 MILLILITER, QD
     Route: 058
  15. TEDUGLUTIDE [Suspect]
     Active Substance: TEDUGLUTIDE
     Dosage: 0.36 MILLILITER, QD
     Route: 058
  16. TEDUGLUTIDE [Suspect]
     Active Substance: TEDUGLUTIDE
     Dosage: 0.36 MILLILITER, QD
     Route: 058

REACTIONS (3)
  - Vascular device infection [Recovered/Resolved]
  - SARS-CoV-2 test positive [Not Recovered/Not Resolved]
  - Abdominal pain upper [Recovered/Resolved]

NARRATIVE: CASE EVENT DATE: 20200214
